FAERS Safety Report 7378218-8 (Version None)
Quarter: 2011Q1

REPORT INFORMATION
  Report Type: 
  Country: None (occurrence: None)
  Receive Date: 20110328
  Receipt Date: 20110321
  Transmission Date: 20110831
  Serious: Yes (Death, Hospitalization)
  Sender: FDA-Public Use
  Company Number: A0919881A

PATIENT
  Age: 68 Year
  Sex: Female

DRUGS (5)
  1. XELODA [Concomitant]
     Route: 065
  2. TYKERB [Suspect]
     Indication: BREAST CANCER
     Dosage: 1250MG PER DAY
     Route: 065
     Dates: start: 20100504, end: 20110319
  3. SUDAFED 12 HOUR [Concomitant]
  4. ATENOLOL [Concomitant]
  5. ACETAMINOPHEN [Concomitant]

REACTIONS (3)
  - METASTASIS [None]
  - DRUG INEFFECTIVE [None]
  - DEATH [None]
